FAERS Safety Report 6907931-9 (Version None)
Quarter: 2010Q3

REPORT INFORMATION
  Report Type: 
  Country: None (occurrence: None)
  Receive Date: 20100805
  Receipt Date: 20100730
  Transmission Date: 20110219
  Serious: Yes (Life-Threatening, Hospitalization)
  Sender: FDA-Public Use
  Company Number: US-SANOFI-AVENTIS-2010SA016696

PATIENT
  Age: 66 Year
  Sex: Male
  Weight: 97 kg

DRUGS (12)
  1. DOCETAXEL [Suspect]
     Indication: PROSTATE CANCER
     Route: 041
     Dates: start: 20090929, end: 20090929
  2. DOCETAXEL [Suspect]
     Route: 041
     Dates: start: 20100316, end: 20100316
  3. ELIGARD [Suspect]
     Indication: PROSTATE CANCER
     Dosage: EVERY 3 MONTH
     Route: 058
     Dates: start: 20090929, end: 20090929
  4. ELIGARD [Suspect]
     Route: 058
     Dates: start: 20100316, end: 20100316
  5. ELIGARD [Suspect]
     Route: 058
     Dates: start: 20100601, end: 20100601
  6. CASODEX [Suspect]
     Indication: PROSTATE CANCER
     Route: 048
     Dates: start: 20090929, end: 20091028
  7. NEULASTA [Concomitant]
     Dates: start: 20100317
  8. DOCUSATE SODIUM [Concomitant]
  9. ASPIRIN [Concomitant]
  10. HYDROCHLOROTHIAZIDE [Concomitant]
     Indication: HYPERTENSION
  11. SIMVASTATIN [Concomitant]
  12. LISINOPRIL [Concomitant]

REACTIONS (1)
  - SMALL INTESTINAL OBSTRUCTION [None]
